FAERS Safety Report 10458845 (Version 1)
Quarter: 2014Q3

REPORT INFORMATION
  Report Type: Spontaneous
  Country: US (occurrence: None)
  Receive Date: 20140916
  Receipt Date: 20140916
  Transmission Date: 20150326
  Serious: No
  Sender: FDA-Public Use
  Company Number: None

PATIENT
  Sex: Male
  Weight: 96.62 kg

DRUGS (1)
  1. TAMSULOSIN HCL [Suspect]
     Active Substance: TAMSULOSIN
     Route: 048
     Dates: start: 201407

REACTIONS (2)
  - Product substitution issue [None]
  - Blood pressure increased [None]

NARRATIVE: CASE EVENT DATE: 201407
